FAERS Safety Report 7499573-4 (Version None)
Quarter: 2011Q2

REPORT INFORMATION
  Report Type: 
  Country: None (occurrence: None)
  Receive Date: 20110524
  Receipt Date: 20110513
  Transmission Date: 20111010
  Serious: Yes (Other)
  Sender: FDA-Public Use
  Company Number: PHHY2010BR81531

PATIENT
  Sex: Female

DRUGS (2)
  1. EXFORGE HCT [Suspect]
     Dosage: 160MG VAL, 12.5MG HYDROCHLO AND 5MG AMLO
  2. EYE DROPS [Concomitant]

REACTIONS (2)
  - OCULAR VASCULAR DISORDER [None]
  - BLOOD PRESSURE INCREASED [None]
